FAERS Safety Report 24769379 (Version 1)
Quarter: 2024Q4

REPORT INFORMATION
  Report Type: Spontaneous
  Country: US (occurrence: None)
  Receive Date: 20241223
  Receipt Date: 20241223
  Transmission Date: 20250114
  Serious: Yes (Hospitalization)
  Sender: Public
  Company Number: None

PATIENT
  Age: 75 Year
  Sex: Male
  Weight: 116 kg

DRUGS (2)
  1. DALBAVANCIN [Suspect]
     Active Substance: DALBAVANCIN
     Indication: Bacteraemia
     Dosage: OTHER FREQUENCY : QWEEK;?
     Route: 042
     Dates: start: 20241126, end: 20241203
  2. DALBAVANCIN [Suspect]
     Active Substance: DALBAVANCIN
     Indication: Staphylococcal infection

REACTIONS (7)
  - Leukopenia [None]
  - Thrombocytopenia [None]
  - Vomiting [None]
  - Pyrexia [None]
  - Chills [None]
  - Nausea [None]
  - Infection [None]

NARRATIVE: CASE EVENT DATE: 20241203
